FAERS Safety Report 4728228-1 (Version None)
Quarter: 2005Q3

REPORT INFORMATION
  Report Type: 
  Country: None (occurrence: None)
  Receive Date: 20050729
  Receipt Date: 20050412
  Transmission Date: 20060218
  Serious: No
  Sender: FDA-Public Use
  Company Number: US-BRISTOL-MYERS SQUIBB COMPANY-12931622

PATIENT
  Sex: Male

DRUGS (3)
  1. BLENOXANE [Suspect]
     Indication: TESTIS CANCER
  2. VP-16 [Concomitant]
     Indication: TESTIS CANCER
  3. CISPLATIN [Concomitant]
     Indication: TESTIS CANCER

REACTIONS (1)
  - NEUTROPHIL COUNT DECREASED [None]
